FAERS Safety Report 20264428 (Version 5)
Quarter: 2022Q2

REPORT INFORMATION
  Report Type: Report from Study
  Country: US (occurrence: US)
  Receive Date: 20211231
  Receipt Date: 20220420
  Transmission Date: 20220721
  Serious: No
  Sender: FDA-Public Use
  Company Number: US-BIOVITRUM-2021US12819

PATIENT
  Sex: Female

DRUGS (28)
  1. KINERET [Suspect]
     Active Substance: ANAKINRA
     Indication: Rheumatoid arthritis
     Route: 058
     Dates: start: 20211225
  2. KINERET [Suspect]
     Active Substance: ANAKINRA
     Route: 058
     Dates: start: 20211224
  3. FIORICET [Concomitant]
     Active Substance: ACETAMINOPHEN\BUTALBITAL\CAFFEINE
  4. LASIX [Concomitant]
     Active Substance: FUROSEMIDE
  5. MONTELUKAST [Concomitant]
     Active Substance: MONTELUKAST SODIUM
  6. SPIRONOLACTONE [Concomitant]
     Active Substance: SPIRONOLACTONE
  7. FOLIC ACID [Concomitant]
     Active Substance: FOLIC ACID
  8. TYLENOL [Concomitant]
     Active Substance: ACETAMINOPHEN
  9. FENOFIBRATE [Concomitant]
     Active Substance: FENOFIBRATE
  10. RINVOQ [Concomitant]
     Active Substance: UPADACITINIB
  11. ASPIRIN [Concomitant]
     Active Substance: ASPIRIN
  12. GLIMEPIRIDE [Concomitant]
     Active Substance: GLIMEPIRIDE
  13. AMLODIPINE [Concomitant]
     Active Substance: AMLODIPINE BESYLATE
  14. LEVOTHYROXINE [Concomitant]
     Active Substance: LEVOTHYROXINE
  15. ROSUVASTATIN [Concomitant]
     Active Substance: ROSUVASTATIN
  16. FLEXERIL [Concomitant]
     Active Substance: CYCLOBENZAPRINE HYDROCHLORIDE
  17. VITAMIN D3 [Concomitant]
     Active Substance: CHOLECALCIFEROL
  18. ATENOLOL [Concomitant]
     Active Substance: ATENOLOL
  19. VITAMIN B12 [Concomitant]
     Active Substance: CYANOCOBALAMIN
  20. LOSARTAN [Concomitant]
     Active Substance: LOSARTAN
  21. DIAZEPAM [Concomitant]
     Active Substance: DIAZEPAM
  22. GABAPENTIN [Concomitant]
     Active Substance: GABAPENTIN
  23. PANTOPRAZOLE [Concomitant]
     Active Substance: PANTOPRAZOLE
  24. HYDROCHLOROTHIAZIDE\LOSARTAN [Concomitant]
     Active Substance: HYDROCHLOROTHIAZIDE\LOSARTAN
  25. TRAZODONE [Concomitant]
     Active Substance: TRAZODONE HYDROCHLORIDE
  26. NUCALA [Concomitant]
     Active Substance: MEPOLIZUMAB
  27. KETOPROFEN- LIDOCAINE CREAM [Concomitant]
  28. LYRICA [Concomitant]
     Active Substance: PREGABALIN

REACTIONS (12)
  - Hyperhidrosis [Not Recovered/Not Resolved]
  - Fatigue [Unknown]
  - Swelling [Unknown]
  - Arthralgia [Unknown]
  - Muscle rigidity [Unknown]
  - Emotional disorder [Unknown]
  - Loss of personal independence in daily activities [Unknown]
  - Pain [Recovered/Resolved]
  - Fatigue [Unknown]
  - Micturition frequency decreased [Unknown]
  - Injection site pain [Unknown]
  - Rash [Unknown]
